FAERS Safety Report 20392442 (Version 1)
Quarter: 2022Q1

REPORT INFORMATION
  Report Type: Report from Study
  Country: US (occurrence: US)
  Receive Date: 20220128
  Receipt Date: 20220128
  Transmission Date: 20220423
  Serious: Yes (Other)
  Sender: FDA-Public Use
  Company Number: US-TAKEDA-2021TUS042950

PATIENT
  Age: 60 Year
  Sex: Female

DRUGS (16)
  1. TEDUGLUTIDE [Suspect]
     Active Substance: TEDUGLUTIDE
     Indication: Short-bowel syndrome
     Dosage: 1.7 MILLIGRAM (0.025MG/KG), QD
     Route: 065
     Dates: start: 20200505, end: 20200521
  2. TEDUGLUTIDE [Suspect]
     Active Substance: TEDUGLUTIDE
     Indication: Short-bowel syndrome
     Dosage: 1.7 MILLIGRAM (0.025MG/KG), QD
     Route: 065
     Dates: start: 20200505, end: 20200521
  3. TEDUGLUTIDE [Suspect]
     Active Substance: TEDUGLUTIDE
     Indication: Short-bowel syndrome
     Dosage: 1.7 MILLIGRAM (0.025MG/KG), QD
     Route: 065
     Dates: start: 20200505, end: 20200521
  4. TEDUGLUTIDE [Suspect]
     Active Substance: TEDUGLUTIDE
     Indication: Short-bowel syndrome
     Dosage: 1.7 MILLIGRAM (0.025MG/KG), QD
     Route: 065
     Dates: start: 20200505, end: 20200521
  5. TEDUGLUTIDE [Suspect]
     Active Substance: TEDUGLUTIDE
     Dosage: 1.0 MILLIGRAM (0.0150MG/KG), 3/WEEK
     Route: 065
     Dates: start: 20200527, end: 20200626
  6. TEDUGLUTIDE [Suspect]
     Active Substance: TEDUGLUTIDE
     Dosage: 1.0 MILLIGRAM (0.0150MG/KG), 3/WEEK
     Route: 065
     Dates: start: 20200527, end: 20200626
  7. TEDUGLUTIDE [Suspect]
     Active Substance: TEDUGLUTIDE
     Dosage: 1.0 MILLIGRAM (0.0150MG/KG), 3/WEEK
     Route: 065
     Dates: start: 20200527, end: 20200626
  8. TEDUGLUTIDE [Suspect]
     Active Substance: TEDUGLUTIDE
     Dosage: 1.0 MILLIGRAM (0.0150MG/KG), 3/WEEK
     Route: 065
     Dates: start: 20200527, end: 20200626
  9. TEDUGLUTIDE [Suspect]
     Active Substance: TEDUGLUTIDE
     Dosage: 1.0 MILLIGRAM (0.0150MG/KG),QD
     Route: 065
     Dates: start: 20200627, end: 202008
  10. TEDUGLUTIDE [Suspect]
     Active Substance: TEDUGLUTIDE
     Dosage: 1.0 MILLIGRAM (0.0150MG/KG),QD
     Route: 065
     Dates: start: 20200627, end: 202008
  11. TEDUGLUTIDE [Suspect]
     Active Substance: TEDUGLUTIDE
     Dosage: 1.0 MILLIGRAM (0.0150MG/KG),QD
     Route: 065
     Dates: start: 20200627, end: 202008
  12. TEDUGLUTIDE [Suspect]
     Active Substance: TEDUGLUTIDE
     Dosage: 1.0 MILLIGRAM (0.0150MG/KG),QD
     Route: 065
     Dates: start: 20200627, end: 202008
  13. LOSARTAN [Concomitant]
     Active Substance: LOSARTAN
     Indication: Blood pressure increased
     Dosage: 50 MILLIGRAM
     Route: 048
     Dates: start: 20201217
  14. BYSTOLIC [Concomitant]
     Active Substance: NEBIVOLOL HYDROCHLORIDE
     Indication: Blood pressure increased
     Dosage: 20 MILLIGRAM, QHS
     Route: 048
     Dates: start: 20200713, end: 20201216
  15. TRINTELLIX [Concomitant]
     Active Substance: VORTIOXETINE HYDROBROMIDE
     Indication: Depression
     Dosage: 10 MILLIGRAM, UNKNOWN
     Route: 048
     Dates: start: 20181210
  16. THIAMINE [Concomitant]
     Active Substance: THIAMINE
     Indication: Hypovitaminosis
     Dosage: 250 MILLIGRAM, QD
     Route: 048
     Dates: start: 20180206

REACTIONS (1)
  - Humerus fracture [Recovered/Resolved]

NARRATIVE: CASE EVENT DATE: 20201116
